FAERS Safety Report 8060592-0 (Version None)
Quarter: 2012Q1

REPORT INFORMATION
  Report Type: 
  Country: None (occurrence: None)
  Receive Date: 20120120
  Receipt Date: 20120106
  Transmission Date: 20120608
  Serious: Yes (Hospitalization, Other)
  Sender: FDA-Public Use
  Company Number: PHHO2012JP001121

PATIENT
  Sex: Male

DRUGS (24)
  1. MYCOPHENOLATE MOFETIL (CELLCEPT) [Suspect]
     Dosage: 750 MG, UNK
     Route: 048
     Dates: start: 20021010
  2. MYCOPHENOLATE MOFETIL (CELLCEPT) [Suspect]
     Dosage: 1000 MG, UNK
     Route: 048
     Dates: start: 20030301, end: 20050714
  3. METHYLPREDNISOLONE [Suspect]
     Indication: LUNG TRANSPLANT REJECTION
     Dosage: 20 MG, UNK
     Route: 042
     Dates: start: 20020206, end: 20020101
  4. ADRENAL CORTEX EXTRACT INJ [Concomitant]
     Indication: LUNG TRANSPLANT REJECTION
     Dosage: UNK UKN, UNK
     Route: 041
     Dates: start: 20030101, end: 20030101
  5. ADRENAL CORTEX EXTRACT INJ [Concomitant]
     Dosage: UNK UKN, UNK
     Route: 041
     Dates: start: 20070101, end: 20070101
  6. BACTRIM [Concomitant]
     Dosage: 1 DF, UNK
     Route: 042
     Dates: start: 20020206, end: 20020303
  7. PROGRAF [Concomitant]
     Route: 048
     Dates: start: 20030101
  8. MYCOPHENOLATE MOFETIL (CELLCEPT) [Suspect]
     Dosage: 1500 MG, UNK
     Route: 048
     Dates: start: 20070810
  9. MYCOPHENOLATE MOFETIL (CELLCEPT) [Suspect]
     Dosage: 1250 MG, UNK
     Route: 048
     Dates: start: 20050715, end: 20070809
  10. METHYLPREDNISOLONE [Suspect]
     Dosage: 500 MG, UNK
     Route: 042
     Dates: start: 20020201, end: 20020201
  11. NEORAL [Suspect]
     Indication: LUNG TRANSPLANT REJECTION
     Dosage: 1300 MG, QD
     Route: 048
     Dates: start: 20020219
  12. CYCLOSPORINE [Suspect]
     Indication: PROPHYLAXIS AGAINST TRANSPLANT REJECTION
     Dosage: 12-48 MG
     Route: 041
     Dates: start: 20020207, end: 20020220
  13. MYCOPHENOLATE MOFETIL (CELLCEPT) [Suspect]
     Dosage: 500 MG, UNK
     Route: 048
     Dates: start: 20020528, end: 20021009
  14. ADRENAL CORTEX EXTRACT INJ [Concomitant]
     Dosage: UNK UKN, UNK
     Route: 041
     Dates: start: 20070101, end: 20070101
  15. GANCICLOVIR [Concomitant]
     Dosage: 1.75 G, UNK
     Route: 048
     Dates: start: 20020521, end: 20020529
  16. MYCOPHENOLATE MOFETIL (CELLCEPT) [Suspect]
     Indication: PROPHYLAXIS AGAINST TRANSPLANT REJECTION
     Dosage: 750 MG, QD
     Route: 048
     Dates: start: 20020207, end: 20020527
  17. GANCICLOVIR [Concomitant]
     Dosage: 75-150 MG
     Route: 042
     Dates: start: 20020216, end: 20020319
  18. GANCICLOVIR [Concomitant]
     Dosage: 1.75 G, UNK
     Route: 048
     Dates: start: 20020821, end: 20021016
  19. PREDNISONE TAB [Suspect]
     Indication: PROPHYLAXIS AGAINST TRANSPLANT REJECTION
     Dosage: 3.75 MG, UNK
     Route: 048
     Dates: start: 20020220
  20. PREDNISONE TAB [Suspect]
     Dosage: 15 MG, QD
     Route: 048
     Dates: start: 20020228
  21. PROGRAF [Concomitant]
     Indication: LUNG TRANSPLANT REJECTION
     Route: 048
     Dates: start: 20030425, end: 20030101
  22. SULFAMETHOXAZOLE [Concomitant]
     Dosage: 1-2 GM
     Route: 048
  23. NEORAL [Suspect]
     Dosage: 270 MG, UNK
     Route: 048
     Dates: start: 20030101
  24. GANCICLOVIR [Concomitant]
     Dosage: 1.75 G, UNK
     Route: 048
     Dates: start: 20020619, end: 20020715

REACTIONS (2)
  - OSTEONECROSIS [None]
  - CYTOMEGALOVIRUS VIRAEMIA [None]
